FAERS Safety Report 7546560-3 (Version None)
Quarter: 2011Q2

REPORT INFORMATION
  Report Type: 
  Country: None (occurrence: None)
  Receive Date: 20110614
  Receipt Date: 20110608
  Transmission Date: 20111010
  Serious: Yes (Life-Threatening)
  Sender: FDA-Public Use
  Company Number: DE-GENZYME-FLUD-1000352

PATIENT

DRUGS (1)
  1. FLUDARA [Suspect]
     Indication: CHRONIC LYMPHOCYTIC LEUKAEMIA
     Dosage: 25 MG/M2, A BS. 50 MG
     Route: 042
     Dates: start: 20100923

REACTIONS (3)
  - INFUSION RELATED REACTION [None]
  - BRONCHOSPASM [None]
  - ANAPHYLACTIC REACTION [None]
